FAERS Safety Report 5073930-8 (Version None)
Quarter: 2006Q3

REPORT INFORMATION
  Report Type: 
  Country: None (occurrence: None)
  Receive Date: 20060808
  Receipt Date: 20050528
  Transmission Date: 20061208
  Serious: No
  Sender: FDA-Public Use
  Company Number: US-AMGEN-KDL136636

PATIENT
  Sex: Female

DRUGS (3)
  1. PROCRIT [Suspect]
     Indication: ANAEMIA
     Dates: start: 20050520
  2. UNSPECIFIED INHALER [Concomitant]
  3. UNSPECIFIED MEDICATION [Concomitant]
     Route: 048

REACTIONS (8)
  - DIZZINESS [None]
  - DYSPNOEA [None]
  - FEELING COLD [None]
  - HYPERSENSITIVITY [None]
  - STOMACH DISCOMFORT [None]
  - THROAT TIGHTNESS [None]
  - TREMOR [None]
  - VISUAL DISTURBANCE [None]
